FAERS Safety Report 20364288 (Version 1)
Quarter: 2022Q1

REPORT INFORMATION
  Report Type: Spontaneous
  Country: US (occurrence: None)
  Receive Date: 20220121
  Receipt Date: 20220121
  Transmission Date: 20220423
  Serious: Yes (Death)
  Sender: FDA-Public Use
  Company Number: None

PATIENT
  Age: 70 Year
  Sex: Male

DRUGS (12)
  1. HUMIRA [Suspect]
     Active Substance: ADALIMUMAB
     Indication: Ankylosing spondylitis
     Dosage: 40 MG/0.8ML ?INJECT 40 MG UNDER SKIN (SUBCUTANEOUS INJECTION) EVERY 14 DAYS?
     Route: 058
     Dates: start: 20210520, end: 20220117
  2. HUMIRA [Suspect]
     Active Substance: ADALIMUMAB
     Indication: Spinal osteoarthritis
  3. ADVAIR DISKU AER [Concomitant]
  4. ATENOLOL [Concomitant]
     Active Substance: ATENOLOL
  5. AZITHROMYCIN [Concomitant]
  6. ELIQUIS [Concomitant]
     Active Substance: APIXABAN
  7. ENOXAPARIN [Concomitant]
     Active Substance: ENOXAPARIN
  8. FLUTICASONE SPR [Concomitant]
  9. HUMIRA [Concomitant]
     Active Substance: ADALIMUMAB
  10. ACETAMINOPHEN\HYDROCODONE [Concomitant]
     Active Substance: ACETAMINOPHEN\HYDROCODONE
  11. SODIUM CHLORINE NEB [Concomitant]
  12. TESTOST CYP [Concomitant]

REACTIONS (1)
  - Death [None]

NARRATIVE: CASE EVENT DATE: 20220117
